FAERS Safety Report 9255750 (Version 1)
Quarter: 2013Q2

REPORT INFORMATION
  Report Type: Spontaneous
  Country: US (occurrence: US)
  Receive Date: 20130425
  Receipt Date: 20130425
  Transmission Date: 20140414
  Serious: Yes (Other)
  Sender: FDA-Public Use
  Company Number: PHEH2013US009159

PATIENT
  Sex: Male

DRUGS (10)
  1. DIOVAN HCT [Suspect]
     Dosage: 1 DF (160MG), BID
     Route: 048
  2. XANAX [Concomitant]
     Dosage: 25 MG, UNK
  3. VALIUM [Concomitant]
     Dosage: UNK UKN, UNK
  4. OXYCONTIN [Concomitant]
     Dosage: UNK UKN, UNK
  5. OXYCODONE [Concomitant]
     Dosage: UNK UKN, UNK
  6. PREDNISONE [Concomitant]
     Dosage: UNK UKN, UNK
  7. COUMADIN SODIUM [Concomitant]
     Dosage: UNK UKN, UNK
  8. ALBUTEROL [Concomitant]
     Dosage: UNK UKN, UNK
  9. PULMICORT [Concomitant]
     Indication: LUNG DISORDER
     Dosage: UNK UKN, UNK
  10. FOLIC ACID [Concomitant]
     Dosage: UNK UKN, UNK

REACTIONS (3)
  - Granulomatosis with polyangiitis [Unknown]
  - Blood pressure increased [Unknown]
  - Wrong technique in drug usage process [Recovered/Resolved]
